FAERS Safety Report 5102716-0 (Version None)
Quarter: 2006Q3

REPORT INFORMATION
  Report Type: 
  Country: None (occurrence: None)
  Receive Date: 20060912
  Receipt Date: 20060907
  Transmission Date: 20061208
  Serious: Yes (Other)
  Sender: FDA-Public Use
  Company Number: PL-BRISTOL-MYERS SQUIBB COMPANY-13502356

PATIENT
  Age: 52 Year
  Sex: Female
  Weight: 62 kg

DRUGS (5)
  1. AMIKIN [Suspect]
  2. GRANOCYTE [Suspect]
  3. GRANULOCYTE CSF [Suspect]
  4. HEVIRAN [Concomitant]
  5. AMOXICILLIN [Concomitant]

REACTIONS (1)
  - RASH [None]
